FAERS Safety Report 19570677 (Version 1)
Quarter: 2021Q3

REPORT INFORMATION
  Report Type: Spontaneous
  Country: GB (occurrence: GB)
  Receive Date: 20210716
  Receipt Date: 20210716
  Transmission Date: 20211014
  Serious: Yes (Other)
  Sender: FDA-Public Use
  Company Number: GB-SA-2021SA228401

PATIENT
  Age: 38 Year
  Sex: Male
  Weight: 132 kg

DRUGS (8)
  1. SITAGLIPTIN [Concomitant]
     Active Substance: SITAGLIPTIN
     Indication: ILL-DEFINED DISORDER
     Route: 065
  2. CETIRIZINE DIHYDROCHLORIDE [Concomitant]
     Active Substance: CETIRIZINE HYDROCHLORIDE
     Indication: ILL-DEFINED DISORDER
     Route: 065
  3. COLECALCIFEROL [Concomitant]
     Active Substance: CHOLECALCIFEROL
     Indication: ILL-DEFINED DISORDER
     Route: 065
  4. METFORMIN HYDROCHLORIDE. [Concomitant]
     Active Substance: METFORMIN HYDROCHLORIDE
     Indication: ILL-DEFINED DISORDER
     Route: 065
  5. ELIGLUSTAT. [Suspect]
     Active Substance: ELIGLUSTAT
     Indication: GAUCHER^S DISEASE TYPE I
     Dosage: 84 MG, BID
     Route: 048
     Dates: start: 20210629
  6. PANTOPRAZOLE [Concomitant]
     Active Substance: PANTOPRAZOLE
     Indication: ILL-DEFINED DISORDER
     Route: 065
  7. COSOPT [Concomitant]
     Active Substance: DORZOLAMIDE HYDROCHLORIDE\TIMOLOL MALEATE
     Indication: ILL-DEFINED DISORDER
  8. ATORVASTATIN [Concomitant]
     Active Substance: ATORVASTATIN
     Indication: ILL-DEFINED DISORDER
     Dosage: UNK
     Route: 065

REACTIONS (1)
  - Extranodal marginal zone B-cell lymphoma (MALT type) [Unknown]

NARRATIVE: CASE EVENT DATE: 20210629
